FAERS Safety Report 7368033-3 (Version None)
Quarter: 2011Q1

REPORT INFORMATION
  Report Type: 
  Country: None (occurrence: None)
  Receive Date: 20110323
  Receipt Date: 20110317
  Transmission Date: 20110831
  Serious: Yes (Other)
  Sender: FDA-Public Use
  Company Number: CA-BRISTOL-MYERS SQUIBB COMPANY-15618457

PATIENT
  Age: 12 Year
  Sex: Male

DRUGS (1)
  1. ABILIFY [Suspect]
     Indication: ATTENTION DEFICIT/HYPERACTIVITY DISORDER

REACTIONS (2)
  - HALLUCINATION [None]
  - NIGHTMARE [None]
